FAERS Safety Report 7647969-X (Version None)
Quarter: 2011Q3

REPORT INFORMATION
  Report Type: 
  Country: None (occurrence: None)
  Receive Date: 20110801
  Receipt Date: 20110725
  Transmission Date: 20111222
  Serious: Yes (Death)
  Sender: FDA-Public Use
  Company Number: DE-GENZYME-FLUD-1001330

PATIENT
  Age: 67 Year
  Sex: Male

DRUGS (8)
  1. FLUDARA [Suspect]
     Indication: CHRONIC MYELOID LEUKAEMIA
     Dosage: 40 MG/M2, QD FROM DAY -6 TO DAY -2
     Route: 042
  2. THIOTEPA [Suspect]
     Indication: CHRONIC MYELOID LEUKAEMIA
     Dosage: 5 MG/KG, BID
     Route: 042
  3. THIOTEPA [Suspect]
     Indication: BONE MARROW CONDITIONING REGIMEN
  4. CYCLOSPORINE [Suspect]
     Indication: BONE MARROW CONDITIONING REGIMEN
  5. CYCLOSPORINE [Suspect]
     Indication: CHRONIC MYELOID LEUKAEMIA
     Dosage: 1 MG/KG, QD FROM DAY -10 TO -3
     Route: 065
  6. ATG FRESENIUS [Suspect]
     Indication: CHRONIC MYELOID LEUKAEMIA
     Dosage: 5 MG/KG, QDX5 FROM DAY -6 TO -2
     Route: 042
  7. ATG FRESENIUS [Suspect]
     Indication: BONE MARROW CONDITIONING REGIMEN
  8. FLUDARA [Suspect]
     Indication: BONE MARROW CONDITIONING REGIMEN

REACTIONS (1)
  - ASPERGILLOSIS [None]
